FAERS Safety Report 8773664 (Version 2)
Quarter: 2012Q4

REPORT INFORMATION
  Report Type: 
  Country: VE (occurrence: VE)
  Receive Date: 20120907
  Receipt Date: 20120918
  Transmission Date: 20130627
  Serious: Yes (Hospitalization)
  Sender: FDA-Public Use
  Company Number: PHHY2012VE077901

PATIENT
  Age: 74 None
  Sex: Female

DRUGS (5)
  1. ACLASTA [Suspect]
     Indication: OSTEOPOROSIS
     Dosage: 5 mg, annually
     Route: 042
     Dates: start: 20110502
  2. SUPRADYN [Concomitant]
  3. CORASPIN [Concomitant]
     Dosage: 81 mg, QD
     Route: 048
  4. APROVEL [Concomitant]
     Indication: HYPERTENSION
     Dosage: 300 mg
     Route: 048
  5. ZANIDIP [Concomitant]
     Indication: HYPERTENSION
     Dosage: 10 mg
     Route: 048

REACTIONS (7)
  - Hypertensive crisis [Recovered/Resolved]
  - Blood pressure abnormal [Recovering/Resolving]
  - Cyanosis [Recovered/Resolved]
  - Respiratory tract infection [Recovered/Resolved]
  - Dyspnoea [Recovering/Resolving]
  - Blue toe syndrome [Recovering/Resolving]
  - Pyrexia [Recovering/Resolving]
